FAERS Safety Report 10684604 (Version 1)
Quarter: 2014Q4

REPORT INFORMATION
  Report Type: Spontaneous
  Country: US (occurrence: None)
  Receive Date: 20141230
  Receipt Date: 20141230
  Transmission Date: 20150529
  Serious: No
  Sender: FDA-Public Use
  Company Number: None

PATIENT
  Age: 20 Year
  Sex: Male
  Weight: 83.92 kg

DRUGS (2)
  1. TYLENOL [Suspect]
     Active Substance: ACETAMINOPHEN
     Indication: TONSILLITIS
     Dosage: TYLENOL 3 (1 PILL) -- TAKEN BY MOUTH
     Route: 048
     Dates: start: 20141228, end: 20141229
  2. TYLENOL [Suspect]
     Active Substance: ACETAMINOPHEN
     Indication: EAR INFECTION
     Dosage: TYLENOL 3 (1 PILL) -- TAKEN BY MOUTH
     Route: 048
     Dates: start: 20141228, end: 20141229

REACTIONS (3)
  - Arthralgia [None]
  - Pain in extremity [None]
  - Myalgia [None]

NARRATIVE: CASE EVENT DATE: 20141228
